FAERS Safety Report 5912165-0 (Version None)
Quarter: 2008Q4

REPORT INFORMATION
  Report Type: 
  Country: None (occurrence: None)
  Receive Date: 20081003
  Receipt Date: 20081003
  Transmission Date: 20090506
  Serious: Yes (Life-Threatening, Hospitalization)
  Sender: FDA-Public Use
  Company Number: None

PATIENT
  Sex: Female
  Weight: 105.2345 kg

DRUGS (1)
  1. DESMOPRESSIN ACETATE [Suspect]
     Indication: INCONTINENCE
     Dosage: ONE SPRAY EACH NOSTRIL AT BEDTIME NASAL
     Route: 045
     Dates: start: 20080728, end: 20080809

REACTIONS (5)
  - CONFUSIONAL STATE [None]
  - GRAND MAL CONVULSION [None]
  - HALLUCINATION [None]
  - HYPONATRAEMIA [None]
  - VOMITING [None]
